FAERS Safety Report 9769948 (Version 3)
Quarter: 2014Q1

REPORT INFORMATION
  Report Type: Spontaneous
  Country: US (occurrence: US)
  Receive Date: 20131218
  Receipt Date: 20140217
  Transmission Date: 20141002
  Serious: Yes (Other)
  Sender: FDA-Public Use
  Company Number: US-UCBSA-103322

PATIENT
  Age: 27 Year
  Sex: Female
  Weight: 44.45 kg

DRUGS (2)
  1. KEPPRA [Suspect]
     Indication: CONVULSION
     Dosage: ONE 500 MG IN THE MORNING AND TWO 500 MG IN THE EVENING
     Route: 048
     Dates: end: 201306
  2. KEPPRA [Suspect]
     Indication: CONVULSION
     Dosage: UNKNOWN DOSE
     Dates: start: 201306, end: 2013

REACTIONS (1)
  - Grand mal convulsion [Recovering/Resolving]
